FAERS Safety Report 8125441-0 (Version None)
Quarter: 2012Q1

REPORT INFORMATION
  Report Type: 
  Country: None (occurrence: None)
  Receive Date: 20120209
  Receipt Date: 20120206
  Transmission Date: 20120608
  Serious: Yes (Life-Threatening, Hospitalization, Disabling)
  Sender: FDA-Public Use
  Company Number: DE-MERCK-1201DEU00058

PATIENT
  Age: 79 Year
  Sex: Female
  Weight: 55 kg

DRUGS (11)
  1. PHENPROCOUMON [Concomitant]
     Indication: ATRIAL FIBRILLATION
     Route: 048
  2. INSULIN ASPART [Concomitant]
     Indication: INSULIN-REQUIRING TYPE 2 DIABETES MELLITUS
     Route: 058
  3. PANTOPRAZOLE [Concomitant]
     Route: 048
  4. BISOPROLOL [Concomitant]
     Route: 048
  5. TROSPIUM CHLORIDE [Concomitant]
     Route: 048
  6. INSULIN DETEMIR [Concomitant]
     Indication: INSULIN-REQUIRING TYPE 2 DIABETES MELLITUS
     Route: 065
  7. LEVOTHYROXINE SODIUM [Concomitant]
     Route: 048
  8. RAMIPRIL [Concomitant]
     Route: 048
  9. ZOCOR [Suspect]
     Indication: HYPERCHOLESTEROLAEMIA
     Route: 048
     Dates: start: 20111115, end: 20111227
  10. TORSEMIDE [Concomitant]
     Route: 048
  11. ALLOPURINOL [Concomitant]
     Route: 048

REACTIONS (4)
  - ANAL INJURY [None]
  - RHABDOMYOLYSIS [None]
  - GASTRITIS EROSIVE [None]
  - RENAL FAILURE CHRONIC [None]
